FAERS Safety Report 19040446 (Version 1)
Quarter: 2021Q1

REPORT INFORMATION
  Report Type: Spontaneous
  Country: US (occurrence: US)
  Receive Date: 20210323
  Receipt Date: 20210323
  Transmission Date: 20210420
  Serious: Yes (Other)
  Sender: FDA-Public Use
  Company Number: US-DENTSPLY-2021SCDP000085

PATIENT
  Age: 33 Year
  Sex: Male

DRUGS (1)
  1. LIDOCAINE. [Suspect]
     Active Substance: LIDOCAINE
     Indication: VENTRICULAR TACHYCARDIA
     Dosage: INFUSION

REACTIONS (1)
  - Atrial fibrillation [Recovered/Resolved]
